FAERS Safety Report 8852085 (Version 2)
Quarter: 2012Q4

REPORT INFORMATION
  Report Type: 
  Country: US (occurrence: None)
  Receive Date: 20121022
  Receipt Date: 20121024
  Transmission Date: 20130627
  Serious: Yes (Hospitalization, Other)
  Sender: FDA-Public Use
  Company Number: None

PATIENT
  Age: 64 Year
  Sex: Male
  Weight: 134.36 kg

DRUGS (2)
  1. METHYLPREDNISOLONE [Suspect]
     Indication: LUMBAR SPONDYLOSIS
     Dosage: 0.5ml -per each of the 3 joint  once - Epidural
     Route: 008
     Dates: start: 20120803, end: 20120803
  2. METHYLPREDNISOLONE [Suspect]
     Indication: LUMBAR DISC DEGENERATION
     Dosage: 0.5ml -per each of the 3 joint  once - Epidural
     Route: 008
     Dates: start: 20120803, end: 20120803

REACTIONS (6)
  - Product contamination [None]
  - Cerebrovascular accident [None]
  - Respiratory failure [None]
  - Brain stem stroke [None]
  - Basal ganglia stroke [None]
  - Slow response to stimuli [None]
